FAERS Safety Report 17138984 (Version 1)
Quarter: 2019Q4

REPORT INFORMATION
  Report Type: Spontaneous
  Country: US (occurrence: US)
  Receive Date: 20191119
  Receipt Date: 20191119
  Transmission Date: 20200122
  Serious: No
  Sender: FDA-Public Use
  Company Number: None

PATIENT
  Age: 39 Year
  Sex: Male

DRUGS (1)
  1. REBIF [Suspect]
     Active Substance: INTERFERON BETA-1A
     Dosage: ?          OTHER FREQUENCY:OTHER;?
     Route: 058
     Dates: start: 2006

REACTIONS (4)
  - Fatigue [None]
  - Therapy cessation [None]
  - Contusion [None]
  - Injection site bruising [None]

NARRATIVE: CASE EVENT DATE: 20191119
